FAERS Safety Report 6553910-3 (Version None)
Quarter: 2010Q1

REPORT INFORMATION
  Report Type: 
  Country: None (occurrence: None)
  Receive Date: 20100127
  Receipt Date: 20100108
  Transmission Date: 20100710
  Serious: No
  Sender: FDA-Public Use
  Company Number: US-BAYER-201011542NA

PATIENT
  Age: 43 Year
  Sex: Female
  Weight: 61 kg

DRUGS (1)
  1. MAGNEVIST [Suspect]
     Indication: NUCLEAR MAGNETIC RESONANCE IMAGING BRAIN
     Dosage: TOTAL DAILY DOSE: 12 ML
     Route: 042
     Dates: start: 20100108, end: 20100108

REACTIONS (4)
  - MUSCULOSKELETAL STIFFNESS [None]
  - NAUSEA [None]
  - RASH [None]
  - VOMITING [None]
